FAERS Safety Report 19087556 (Version 1)
Quarter: 2021Q2

REPORT INFORMATION
  Report Type: Spontaneous
  Country: US (occurrence: US)
  Receive Date: 20210402
  Receipt Date: 20210402
  Transmission Date: 20210717
  Serious: No
  Sender: FDA-Public Use
  Company Number: US-UPSHER-SMITH LABORATORIES, LLC-2021USL00071

PATIENT
  Age: 2 Year
  Sex: Male

DRUGS (2)
  1. VIGADRONE [Suspect]
     Active Substance: VIGABATRIN
     Indication: SEIZURE
     Dosage: UNK
     Route: 048
  2. GENERIC FOR ONFI [Concomitant]

REACTIONS (2)
  - Choking [Not Recovered/Not Resolved]
  - Cough [Not Recovered/Not Resolved]
